FAERS Safety Report 20681093 (Version 1)
Quarter: 2022Q2

REPORT INFORMATION
  Report Type: Spontaneous
  Country: US (occurrence: US)
  Receive Date: 20220406
  Receipt Date: 20220406
  Transmission Date: 20220721
  Serious: Yes (Other)
  Sender: FDA-Public Use
  Company Number: US-KYOWAKIRIN-2022BKK004661

PATIENT

DRUGS (1)
  1. NOURIANZ [Suspect]
     Active Substance: ISTRADEFYLLINE
     Indication: Parkinson^s disease
     Dosage: 40 MG, ONCE A DAY
     Route: 048
     Dates: start: 20190121

REACTIONS (10)
  - Guillain-Barre syndrome [Unknown]
  - Diplegia [Unknown]
  - Mental status changes [Not Recovered/Not Resolved]
  - Hyperphagia [Not Recovered/Not Resolved]
  - Eating disorder [Unknown]
  - Dry mouth [Unknown]
  - Weight decreased [Unknown]
  - Depression [Not Recovered/Not Resolved]
  - Insomnia [Unknown]
  - Constipation [Unknown]
